FAERS Safety Report 16761000 (Version 2)
Quarter: 2019Q3

REPORT INFORMATION
  Report Type: Spontaneous
  Country: PK (occurrence: PK)
  Receive Date: 20190830
  Receipt Date: 20190917
  Transmission Date: 20191005
  Serious: No
  Sender: FDA-Public Use
  Company Number: PK-PFIZER INC-2019368528

PATIENT
  Age: 60 Year
  Sex: Male

DRUGS (2)
  1. TRAMAL [Concomitant]
     Active Substance: TRAMADOL
     Indication: PAIN
     Dosage: 50 MG, (1+1+1)
     Dates: start: 20190809
  2. SUTENT [Suspect]
     Active Substance: SUNITINIB MALATE
     Indication: RENAL CELL CARCINOMA
     Dosage: 50 MG, CYCLIC, DAILY 4 WEEKS ON + 2 WEEKS OFF
     Dates: start: 20190809

REACTIONS (2)
  - Gastric disorder [Unknown]
  - Mouth ulceration [Unknown]
